FAERS Safety Report 7584979-5 (Version None)
Quarter: 2011Q2

REPORT INFORMATION
  Report Type: 
  Country: None (occurrence: None)
  Receive Date: 20110630
  Receipt Date: 20110629
  Transmission Date: 20111010
  Serious: Yes (Death)
  Sender: FDA-Public Use
  Company Number: NL-ABBOTT-10P-114-0629231-00

PATIENT
  Sex: Male
  Weight: 83 kg

DRUGS (5)
  1. LEUPROLIDE ACETATE [Suspect]
     Indication: PROSTATE CANCER
     Route: 058
     Dates: start: 20090909
  2. ASCAL CARDIO [Concomitant]
     Indication: ANTICOAGULANT THERAPY
     Route: 048
     Dates: start: 20100216
  3. DILTIAZEM HCL RETARD [Concomitant]
     Indication: CARDIOMYOPATHY
     Route: 048
     Dates: start: 20100216
  4. ISOSORBID [Concomitant]
     Indication: ARTERIOSCLEROSIS
     Route: 048
     Dates: start: 20100216
  5. SIMVASTATIN [Concomitant]
     Indication: BLOOD CHOLESTEROL INCREASED
     Route: 048
     Dates: start: 20100216

REACTIONS (2)
  - DEATH [None]
  - HOT FLUSH [None]
